FAERS Safety Report 15154931 (Version 1)
Quarter: 2018Q3

REPORT INFORMATION
  Report Type: Spontaneous
  Country: US (occurrence: US)
  Receive Date: 20180717
  Receipt Date: 20180717
  Transmission Date: 20181010
  Serious: No
  Sender: FDA-Public Use
  Company Number: US-TARO-2018TAR00283

PATIENT
  Sex: Female

DRUGS (1)
  1. DESONIDE. [Suspect]
     Active Substance: DESONIDE
     Indication: VITILIGO
     Dosage: UNK

REACTIONS (1)
  - Drug ineffective [Recovered/Resolved]
